FAERS Safety Report 5661277-8 (Version None)
Quarter: 2008Q1

REPORT INFORMATION
  Report Type: 
  Country: None (occurrence: None)
  Receive Date: 20080312
  Receipt Date: 20080305
  Transmission Date: 20080703
  Serious: Yes (Hospitalization, Disabling)
  Sender: FDA-Public Use
  Company Number: D0052989A

PATIENT
  Age: 67 Year
  Sex: Female
  Weight: 80 kg

DRUGS (1)
  1. AVANDIA [Suspect]
     Dosage: 2MG PER DAY
     Route: 048
     Dates: start: 20051202

REACTIONS (7)
  - FORMICATION [None]
  - HYPOAESTHESIA [None]
  - INSOMNIA [None]
  - MYOPATHY [None]
  - PAIN [None]
  - PARAESTHESIA [None]
  - POLYNEUROPATHY [None]
